FAERS Safety Report 24927777 (Version 1)
Quarter: 2025Q1

REPORT INFORMATION
  Report Type: Spontaneous
  Country: FI (occurrence: FI)
  Receive Date: 20250205
  Receipt Date: 20250205
  Transmission Date: 20250409
  Serious: Yes (Hospitalization, Other)
  Sender: UCB
  Company Number: FI-UCBSA-2025006114

PATIENT
  Sex: Male

DRUGS (2)
  1. BIMZELX [Suspect]
     Active Substance: BIMEKIZUMAB-BKZX
     Indication: Psoriasis
     Dosage: 320 MILLIGRAM, EV 8 WEEKS
     Dates: start: 202411, end: 202411
  2. BIMZELX [Suspect]
     Active Substance: BIMEKIZUMAB-BKZX
     Indication: Psoriatic arthropathy

REACTIONS (8)
  - Pneumonia [Recovered/Resolved]
  - Empyema [Recovered/Resolved]
  - Empyema drainage [Recovered/Resolved]
  - Laparoscopic surgery [Recovered/Resolved]
  - Haematoma [Recovered/Resolved]
  - Haematoma evacuation [Recovered/Resolved]
  - Atelectasis [Recovered/Resolved]
  - C-reactive protein increased [Recovered/Resolved]

NARRATIVE: CASE EVENT DATE: 20241220
